FAERS Safety Report 22044374 (Version 1)
Quarter: 2023Q1

REPORT INFORMATION
  Report Type: Spontaneous
  Country: US (occurrence: None)
  Receive Date: 20230227
  Receipt Date: 20230227
  Transmission Date: 20230417
  Serious: No
  Sender: FDA-Public Use
  Company Number: None

PATIENT
  Age: 87 Year
  Sex: Female

DRUGS (2)
  1. COSENTYX [Suspect]
     Active Substance: SECUKINUMAB
     Indication: Psoriasis
     Dosage: FREQUENCY : WEEKLY;?
     Route: 058
     Dates: start: 202109
  2. METHOTREXATE [Suspect]
     Active Substance: METHOTREXATE

REACTIONS (10)
  - Rash [None]
  - Pruritus [None]
  - Erythema [None]
  - Dry skin [None]
  - Abdominal discomfort [None]
  - Tooth disorder [None]
  - Inflammation [None]
  - Hypertension [None]
  - Palpitations [None]
  - Stress [None]
